FAERS Safety Report 9818243 (Version 1)
Quarter: 2013Q4

REPORT INFORMATION
  Report Type: Spontaneous
  Country: US (occurrence: None)
  Receive Date: 20131223
  Receipt Date: 20131223
  Transmission Date: 20140711
  Serious: Yes (Other)
  Sender: FDA-Public Use
  Company Number: 219379

PATIENT
  Sex: Male

DRUGS (2)
  1. PICATO GEL [Suspect]
     Indication: ACTINIC KERATOSIS
     Route: 061
     Dates: start: 20121018, end: 20121020
  2. BYSTOLIC (NEBIVOLOL HYDROCHLORIDE) [Concomitant]

REACTIONS (4)
  - Erythema [None]
  - Scab [None]
  - Skin exfoliation [None]
  - Drug administered at inappropriate site [None]
